FAERS Safety Report 8785861 (Version 1)
Quarter: 2012Q4

REPORT INFORMATION
  Report Type: 
  Country: AU (occurrence: AU)
  Receive Date: 20120914
  Receipt Date: 20120914
  Transmission Date: 20130627
  Serious: Yes (Death)
  Sender: FDA-Public Use
  Company Number: AU-B.I. PHARMACEUTICALS,INC./RIDGEFIELD-2012-AU-01593AU

PATIENT
  Sex: Male

DRUGS (3)
  1. PRADAXA [Suspect]
     Indication: CEREBROVASCULAR ACCIDENT PROPHYLAXIS
     Dates: start: 20110909, end: 201204
  2. PRADAXA [Suspect]
     Indication: ATRIAL FIBRILLATION
  3. WARFARIN [Suspect]
     Dates: start: 201204

REACTIONS (1)
  - Respiratory disorder [Fatal]
